FAERS Safety Report 13970593 (Version 1)
Quarter: 2017Q3

REPORT INFORMATION
  Report Type: Spontaneous
  Country: GB (occurrence: GB)
  Receive Date: 20170914
  Receipt Date: 20170914
  Transmission Date: 20171128
  Serious: Yes (Other)
  Sender: FDA-Public Use
  Company Number: GB-MYLANLABS-2017M1056252

PATIENT
  Sex: Female

DRUGS (1)
  1. FENTANYL. [Suspect]
     Active Substance: FENTANYL
     Indication: PRODUCT USED FOR UNKNOWN INDICATION
     Dosage: 112MCG PER HR.
     Route: 062
     Dates: start: 20170724

REACTIONS (5)
  - Wrong patient received medication [Unknown]
  - Constipation [Unknown]
  - Nausea [Unknown]
  - Confusional state [Unknown]
  - Vomiting [Unknown]

NARRATIVE: CASE EVENT DATE: 20170624
